FAERS Safety Report 9306857 (Version 1)
Quarter: 2013Q2

REPORT INFORMATION
  Report Type: Spontaneous
  Country: US (occurrence: US)
  Receive Date: 20130523
  Receipt Date: 20130523
  Transmission Date: 20140414
  Serious: Yes (Other)
  Sender: FDA-Public Use
  Company Number: CHPA2013US008682

PATIENT
  Age: 65 Year
  Sex: Female

DRUGS (2)
  1. GAS-X [Suspect]
     Indication: PREMEDICATION
     Dosage: 125 MG, UNK
     Route: 048
  2. GAS-X [Suspect]
     Dosage: 500 MG, ONCE/SINGLE
     Route: 048

REACTIONS (5)
  - Nephrolithiasis [Not Recovered/Not Resolved]
  - Off label use [Unknown]
  - Drug ineffective [Unknown]
  - Expired drug administered [Unknown]
  - Incorrect dose administered [Unknown]
